FAERS Safety Report 18663796 (Version 2)
Quarter: 2020Q4

REPORT INFORMATION
  Report Type: Spontaneous
  Country: PL (occurrence: PL)
  Receive Date: 20201224
  Receipt Date: 20201231
  Transmission Date: 20210114
  Serious: Yes (Hospitalization, Other)
  Sender: FDA-Public Use
  Company Number: PL-AUROBINDO-AUR-APL-2020-062534

PATIENT
  Age: 18 Year
  Sex: Female

DRUGS (13)
  1. VENLAFAXINE [Suspect]
     Active Substance: VENLAFAXINE HYDROCHLORIDE
     Indication: NEUROLOGICAL SYMPTOM
     Dosage: UNK
     Route: 065
  2. CLORAZEPIC ACID [Suspect]
     Active Substance: CLORAZEPIC ACID
     Indication: NEUROLOGICAL SYMPTOM
     Dosage: UNK
     Route: 065
  3. TRAZODONE [Suspect]
     Active Substance: TRAZODONE HYDROCHLORIDE
     Indication: BORDERLINE PERSONALITY DISORDER
  4. PREGABALIN. [Suspect]
     Active Substance: PREGABALIN
     Indication: BORDERLINE PERSONALITY DISORDER
  5. QUETIAPINE. [Suspect]
     Active Substance: QUETIAPINE
     Indication: BORDERLINE PERSONALITY DISORDER
  6. CLORAZEPIC ACID [Suspect]
     Active Substance: CLORAZEPIC ACID
     Indication: BORDERLINE PERSONALITY DISORDER
  7. VENLAFAXINE [Suspect]
     Active Substance: VENLAFAXINE HYDROCHLORIDE
     Indication: BORDERLINE PERSONALITY DISORDER
  8. TRAZODONE [Suspect]
     Active Substance: TRAZODONE HYDROCHLORIDE
     Indication: NEUROLOGICAL SYMPTOM
     Dosage: UNK
     Route: 065
  9. PREGABALIN. [Suspect]
     Active Substance: PREGABALIN
     Indication: NEUROLOGICAL SYMPTOM
     Dosage: UNK
     Route: 048
  10. QUETIAPINE. [Suspect]
     Active Substance: QUETIAPINE
     Indication: NEUROLOGICAL SYMPTOM
     Dosage: UNK
     Route: 065
  11. PERAZINE [Suspect]
     Active Substance: PERAZINE
     Indication: BORDERLINE PERSONALITY DISORDER
  12. PERAZINE [Suspect]
     Active Substance: PERAZINE
     Indication: NEUROLOGICAL SYMPTOM
     Dosage: UNK
     Route: 065
  13. CLORAZEPATE DIPOTASSIUM. [Suspect]
     Active Substance: CLORAZEPATE DIPOTASSIUM
     Indication: PRODUCT USED FOR UNKNOWN INDICATION
     Dosage: UNK

REACTIONS (9)
  - Altered state of consciousness [Unknown]
  - Refusal of treatment by patient [Unknown]
  - Anxiety [Unknown]
  - Irritability [Unknown]
  - Dizziness [Unknown]
  - Confusional state [Unknown]
  - Withdrawal syndrome [Unknown]
  - Treatment noncompliance [Unknown]
  - Off label use [Unknown]
